FAERS Safety Report 20617326 (Version 1)
Quarter: 2022Q1

REPORT INFORMATION
  Report Type: Spontaneous
  Country: US (occurrence: US)
  Receive Date: 20220321
  Receipt Date: 20220321
  Transmission Date: 20220423
  Serious: Yes (Death, Other)
  Sender: FDA-Public Use
  Company Number: US-LANTHEUS-LMI-2022-00251

PATIENT
  Age: 65 Year
  Sex: Male
  Weight: 133 kg

DRUGS (1)
  1. DEFINITY [Suspect]
     Active Substance: PERFLUTREN
     Indication: Echocardiogram
     Dosage: 5 ML (1.3 ML DEFINITY PREPARED IN 8.7 ML DILUENT)
     Route: 042
     Dates: start: 20220307, end: 20220307

REACTIONS (10)
  - Death [Fatal]
  - Acute pulmonary oedema [Unknown]
  - Respiratory failure [Unknown]
  - Anaphylactic reaction [Unknown]
  - Contrast media allergy [Unknown]
  - Cardio-respiratory arrest [Unknown]
  - Polymers allergy [Unknown]
  - Bundle branch block left [Unknown]
  - Hypertension [Unknown]
  - Supraventricular tachycardia [Unknown]

NARRATIVE: CASE EVENT DATE: 20220307
